FAERS Safety Report 8018697-6 (Version None)
Quarter: 2011Q4

REPORT INFORMATION
  Report Type: 
  Country: None (occurrence: None)
  Receive Date: 20111227
  Receipt Date: 20111212
  Transmission Date: 20120403
  Serious: Yes (Other)
  Sender: FDA-Public Use
  Company Number: 11-094-01

PATIENT
  Age: 11 Year

DRUGS (2)
  1. LEVETIRACETAM [Suspect]
     Indication: PETIT MAL EPILEPSY
     Dosage: 17 MG/KG;QD
  2. ETHOSUXIMIDE [Concomitant]

REACTIONS (3)
  - CONDITION AGGRAVATED [None]
  - PETIT MAL EPILEPSY [None]
  - GRAND MAL CONVULSION [None]
